FAERS Safety Report 5428852-7 (Version None)
Quarter: 2007Q3

REPORT INFORMATION
  Report Type: 
  Country: None (occurrence: None)
  Receive Date: 20070824
  Receipt Date: 20070816
  Transmission Date: 20080115
  Serious: Yes (Hospitalization, Other)
  Sender: FDA-Public Use
  Company Number: 2007SP010027

PATIENT
  Age: 55 Year
  Sex: Female
  Weight: 46 kg

DRUGS (8)
  1. TEMODAL [Suspect]
     Indication: GLIOBLASTOMA MULTIFORME
     Dosage: 100 MG;QD;PO
     Route: 048
     Dates: start: 20070510, end: 20070517
  2. VALPROATE SODIUM [Suspect]
     Indication: EPILEPSY
     Dosage: 800 MG;  ;PO
     Route: 048
     Dates: start: 20070410, end: 20070614
  3. VALPROATE SODIUM [Suspect]
     Indication: PROPHYLAXIS
     Dosage: 800 MG;  ;PO
     Route: 048
     Dates: start: 20070410, end: 20070614
  4. FAMOTIDINE [Suspect]
     Indication: PROPHYLAXIS
     Dosage: 40 MG; ;PO
     Route: 048
     Dates: start: 20070410, end: 20070523
  5. PHENOBARBITAL TAB [Suspect]
     Indication: PROPHYLAXIS
     Dosage: 150 MG; ;PO
     Route: 048
     Dates: start: 20070523, end: 20070525
  6. GASMOTIN [Concomitant]
  7. NAUZELIN [Concomitant]
  8. MIYA BM [Concomitant]

REACTIONS (8)
  - ABDOMINAL DISCOMFORT [None]
  - ALANINE AMINOTRANSFERASE INCREASED [None]
  - ASPARTATE AMINOTRANSFERASE INCREASED [None]
  - BILIRUBIN CONJUGATED INCREASED [None]
  - DECREASED APPETITE [None]
  - HEPATIC FUNCTION ABNORMAL [None]
  - JAUNDICE [None]
  - PRURITUS [None]
